FAERS Safety Report 13727903 (Version 3)
Quarter: 2020Q1

REPORT INFORMATION
  Report Type: Spontaneous
  Country: US (occurrence: US)
  Receive Date: 20170707
  Receipt Date: 20200228
  Transmission Date: 20200409
  Serious: Yes (Death, Hospitalization)
  Sender: FDA-Public Use
  Company Number: US-JNJFOC-20170415574

PATIENT
  Age: 69 Year
  Sex: Female

DRUGS (3)
  1. XARELTO [Suspect]
     Active Substance: RIVAROXABAN
     Indication: PULMONARY EMBOLISM
     Route: 048
     Dates: start: 20140219, end: 20140411
  2. XARELTO [Suspect]
     Active Substance: RIVAROXABAN
     Route: 048
     Dates: start: 20140401, end: 20140413
  3. COUMADIN [Suspect]
     Active Substance: WARFARIN SODIUM
     Indication: PULMONARY EMBOLISM
     Route: 065

REACTIONS (1)
  - Splenic varices haemorrhage [Fatal]

NARRATIVE: CASE EVENT DATE: 20140411
